FAERS Safety Report 5718277-9 (Version None)
Quarter: 2008Q2

REPORT INFORMATION
  Report Type: 
  Country: None (occurrence: None)
  Receive Date: 20080425
  Receipt Date: 20070412
  Transmission Date: 20081010
  Serious: No
  Sender: FDA-Public Use
  Company Number: US-ASTRAZENECA-2007UW07170

PATIENT
  Age: 46 Year
  Sex: Female
  Weight: 54.4 kg

DRUGS (1)
  1. ZOMIG [Suspect]
     Indication: MIGRAINE
     Route: 048

REACTIONS (4)
  - DIZZINESS [None]
  - FEELING ABNORMAL [None]
  - ILL-DEFINED DISORDER [None]
  - VOMITING [None]
